FAERS Safety Report 18351605 (Version 2)
Quarter: 2021Q1

REPORT INFORMATION
  Report Type: Spontaneous
  Country: US (occurrence: US)
  Receive Date: 20201006
  Receipt Date: 20210108
  Transmission Date: 20210419
  Serious: Yes (Hospitalization)
  Sender: FDA-Public Use
  Company Number: US-AMNEAL PHARMACEUTICALS-2020-AMRX-02765

PATIENT
  Sex: Female
  Weight: 8.25 kg

DRUGS (4)
  1. VIGABATRIN. [Suspect]
     Active Substance: VIGABATRIN
     Indication: ILLNESS
     Dosage: 300 MILLIGRAM, BID
     Route: 048
     Dates: start: 2020, end: 2020
  2. VIGABATRIN. [Suspect]
     Active Substance: VIGABATRIN
     Dosage: 700 MILLIGRAM, 2 /DAY
     Route: 048
     Dates: start: 2020
  3. VIGABATRIN. [Suspect]
     Active Substance: VIGABATRIN
     Dosage: 500 MILLIGRAM, 2 /DAY
     Route: 048
     Dates: start: 2020
  4. VIGABATRIN. [Suspect]
     Active Substance: VIGABATRIN
     Indication: SEIZURE
     Dosage: UNK; DOSE INCREASED
     Route: 048
     Dates: start: 2020, end: 2020

REACTIONS (3)
  - Infantile spasms [Recovering/Resolving]
  - Product dose omission issue [Unknown]
  - Seizure [Unknown]

NARRATIVE: CASE EVENT DATE: 2020
